FAERS Safety Report 7202846-3 (Version None)
Quarter: 2010Q4

REPORT INFORMATION
  Report Type: 
  Country: None (occurrence: None)
  Receive Date: 20101229
  Receipt Date: 20101220
  Transmission Date: 20110411
  Serious: Yes (Hospitalization)
  Sender: FDA-Public Use
  Company Number: JP-PFIZER INC-2010161944

PATIENT
  Age: 66 Year
  Sex: Female
  Weight: 54 kg

DRUGS (20)
  1. LYRICA [Suspect]
     Indication: POST HERPETIC NEURALGIA
     Dosage: 75 MG, 1X/DAY
     Route: 048
     Dates: start: 20101201, end: 20101201
  2. ASPIRIN [Concomitant]
     Dosage: 100 MG, UNK
     Route: 048
  3. BLOPRESS [Concomitant]
     Dosage: 8 MG, UNK
     Route: 048
  4. NORVASC [Concomitant]
     Indication: HYPERTENSION
     Dosage: 5 MG, UNK
     Route: 048
     Dates: start: 20060101
  5. WARFARIN [Concomitant]
     Indication: THROMBOSIS PROPHYLAXIS
     Dosage: 2.5 MG, 1X/DAY
     Route: 048
     Dates: start: 20090101
  6. BEZATOL [Concomitant]
     Route: 048
  7. MAGNESIUM OXIDE [Concomitant]
     Indication: CONSTIPATION
     Dosage: 660 MG, 3X/DAY
     Route: 048
     Dates: start: 20060101
  8. NOVORAPID [Concomitant]
     Indication: DIABETES MELLITUS
     Dosage: 12 IU ONCE AND 8 IU ONCE
     Route: 058
  9. INSULIN DETEMIR [Concomitant]
  10. LASIX [Concomitant]
     Indication: CARDIAC FAILURE
     Dosage: 20 MG, 1X/DAY
     Dates: start: 20090101
  11. PLAVIX [Concomitant]
     Indication: THROMBOSIS PROPHYLAXIS
     Dosage: 75 MG, 1X/DAY
     Route: 048
     Dates: start: 20090101
  12. LIPITOR [Concomitant]
     Indication: HYPERLIPIDAEMIA
     Dosage: 10 MG, 1X/DAY
     Route: 048
     Dates: start: 20060101
  13. TAKEPRON [Concomitant]
     Indication: GASTRIC ULCER
     Dosage: 15 MG, 1X/DAY
     Route: 048
     Dates: start: 20090101
  14. PURSENNID [Concomitant]
     Indication: CONSTIPATION
     Dosage: 12 MG, 1X/DAY
     Route: 048
     Dates: start: 20060101
  15. LOXONIN [Concomitant]
     Indication: PAIN
     Dosage: 60 MG, 3X/DAY
     Route: 048
     Dates: start: 20101120
  16. MYSLEE [Concomitant]
     Indication: INSOMNIA
     Dosage: 5 MG, 1X/DAY
     Route: 048
     Dates: start: 20101120
  17. GASMOTIN [Concomitant]
     Indication: ABDOMINAL DISCOMFORT
     Dosage: 5 MG, 3X/DAY
     Route: 048
     Dates: start: 20090101
  18. KETOPROFEN [Concomitant]
     Indication: PAIN IN EXTREMITY
     Dosage: UNK
     Route: 062
     Dates: start: 20101119
  19. TEGRETOL [Concomitant]
     Indication: PAIN IN EXTREMITY
     Dosage: 100 MG, 1X/DAY
     Route: 048
     Dates: start: 20101129, end: 20101129
  20. DEPAS [Concomitant]
     Indication: PAIN IN EXTREMITY
     Dosage: 0.5 MG, 1X/DAY
     Route: 048
     Dates: start: 20101129, end: 20101129

REACTIONS (5)
  - ASTHENIA [None]
  - DYSPHEMIA [None]
  - FEELING ABNORMAL [None]
  - GAIT DISTURBANCE [None]
  - MUSCULAR WEAKNESS [None]
